FAERS Safety Report 5074462-3 (Version None)
Quarter: 2006Q3

REPORT INFORMATION
  Report Type: 
  Country: None (occurrence: None)
  Receive Date: 20060808
  Receipt Date: 20060724
  Transmission Date: 20061208
  Serious: Yes (Other)
  Sender: FDA-Public Use
  Company Number: TR-BOEHRINGER INGELHEIM PHARMACEUTICALS, INC.-2006-DE-03860GD

PATIENT
  Age: 38 Year
  Sex: Female

DRUGS (5)
  1. IBUPROFEN [Suspect]
  2. ACETAMINOPHEN [Suspect]
  3. MELOXICAM [Suspect]
     Indication: ALLERGY TEST
     Dosage: 7.5 AND 15 MG
     Route: 048
  4. ROFECOXIB [Concomitant]
     Indication: ALLERGY TEST
     Dosage: 12.5 AND 25 MG
     Route: 048
  5. CODEINE SUL TAB [Concomitant]
     Indication: ALLERGY TEST
     Dosage: 20 AND 30 MG
     Route: 048

REACTIONS (5)
  - ANGIONEUROTIC OEDEMA [None]
  - ASTHMA [None]
  - BRONCHOSPASM [None]
  - DRUG INTOLERANCE [None]
  - URTICARIA [None]
